FAERS Safety Report 16773940 (Version 1)
Quarter: 2019Q3

REPORT INFORMATION
  Report Type: Spontaneous
  Country: US (occurrence: US)
  Receive Date: 20190904
  Receipt Date: 20190904
  Transmission Date: 20191005
  Serious: No
  Sender: FDA-Public Use
  Company Number: US-AMGEN-USASP2019139403

PATIENT
  Sex: Female

DRUGS (2)
  1. XGEVA [Suspect]
     Active Substance: DENOSUMAB
     Indication: PRODUCT USED FOR UNKNOWN INDICATION
     Dosage: UNK
     Route: 065
  2. IBRANCE [Suspect]
     Active Substance: PALBOCICLIB
     Indication: BREAST CANCER
     Dosage: 120 MILLIGRAM, QD
     Route: 048
     Dates: start: 20190309

REACTIONS (6)
  - Hypoaesthesia [Recovering/Resolving]
  - White blood cell count decreased [Unknown]
  - Neutrophil count decreased [Unknown]
  - Paraesthesia [Recovering/Resolving]
  - Peripheral swelling [Recovering/Resolving]
  - Feeling hot [Recovering/Resolving]

NARRATIVE: CASE EVENT DATE: 2019
